FAERS Safety Report 9044135 (Version 1)
Quarter: 2013Q1

REPORT INFORMATION
  Report Type: Report from Study
  Country: US (occurrence: US)
  Receive Date: 20130130
  Receipt Date: 20130130
  Transmission Date: 20140127
  Serious: No
  Sender: FDA-Public Use
  Company Number: US-ABBOTT-12P-163-0936144-00

PATIENT
  Age: 39 Year
  Sex: Male

DRUGS (12)
  1. HUMIRA 40 MG/0.8 ML PEN [Suspect]
     Indication: COLITIS ULCERATIVE
     Dates: start: 20120413
  2. LIALDA [Concomitant]
     Indication: COLITIS ULCERATIVE
     Dosage: 1.2 GRAM DAILY
  3. PREDNISONE [Concomitant]
     Indication: COLITIS ULCERATIVE
     Dosage: 20 MG DAILY
  4. FISH OIL [Concomitant]
     Indication: COLITIS ULCERATIVE
     Dosage: DAILY
  5. VITAMIN-E [Concomitant]
     Indication: COLITIS ULCERATIVE
     Dosage: DAILY
  6. VITAMIN B [Concomitant]
     Indication: COLITIS ULCERATIVE
     Dosage: DAILY
  7. VITAMIN-C [Concomitant]
     Indication: COLITIS ULCERATIVE
     Dosage: DAILY
  8. ALIGN [Concomitant]
     Indication: GASTROOESOPHAGEAL REFLUX DISEASE
     Dosage: DAILY
  9. DEXILANT [Concomitant]
     Indication: GASTROOESOPHAGEAL REFLUX DISEASE
     Dosage: DAILY
  10. LOSARTAN POTASSIUM AND HYDROCHLOROTHIAZIDE [Concomitant]
     Indication: HYPERTENSION
     Dosage: 100 MG DAILY
  11. LIBRAX [Concomitant]
     Indication: PRODUCT USED FOR UNKNOWN INDICATION
     Dosage: 3 TABLETS DAILY AS NEEDED
  12. PREDNISONE [Concomitant]
     Indication: PRODUCT USED FOR UNKNOWN INDICATION

REACTIONS (5)
  - Haemorrhage [Not Recovered/Not Resolved]
  - Drug ineffective [Not Recovered/Not Resolved]
  - Abdominal pain [Not Recovered/Not Resolved]
  - Drug ineffective [Not Recovered/Not Resolved]
  - Drug ineffective [Not Recovered/Not Resolved]
